FAERS Safety Report 7191863-8 (Version None)
Quarter: 2010Q4

REPORT INFORMATION
  Report Type: 
  Country: None (occurrence: None)
  Receive Date: 20101223
  Receipt Date: 20101210
  Transmission Date: 20110411
  Serious: Yes (Hospitalization)
  Sender: FDA-Public Use
  Company Number: PHHY2010JP82841

PATIENT
  Age: 80 Year
  Sex: Male

DRUGS (6)
  1. RASILEZ [Suspect]
     Indication: HYPERTENSION
     Dosage: 150 MG DAILY.
     Route: 048
  2. POLYFUL [Concomitant]
     Dosage: UNK
     Route: 048
     Dates: end: 20101203
  3. GASTER [Concomitant]
     Dosage: UNK
     Route: 048
     Dates: end: 20101203
  4. LASIX [Concomitant]
     Dosage: UNK
     Route: 048
     Dates: end: 20101203
  5. DIART [Concomitant]
     Dosage: UNK
     Route: 048
     Dates: end: 20101203
  6. ZYLORIC [Concomitant]
     Dosage: UNK
     Route: 048

REACTIONS (4)
  - BLOOD CREATININE INCREASED [None]
  - NEPHROSCLEROSIS [None]
  - RENAL FAILURE [None]
  - SOMNOLENCE [None]
